FAERS Safety Report 16751373 (Version 2)
Quarter: 2019Q3

REPORT INFORMATION
  Report Type: Spontaneous
  Country: JP (occurrence: JP)
  Receive Date: 20190828
  Receipt Date: 20190830
  Transmission Date: 20191005
  Serious: Yes (Death, Other)
  Sender: FDA-Public Use
  Company Number: JP-ASTRAZENECA-2019SF21144

PATIENT
  Age: 75 Year
  Sex: Male
  Weight: 49 kg

DRUGS (6)
  1. IMFINZI [Suspect]
     Active Substance: DURVALUMAB
     Indication: NON-SMALL CELL LUNG CANCER
     Route: 041
     Dates: start: 20190724, end: 20190724
  2. VOGLIBOSE [Concomitant]
     Active Substance: VOGLIBOSE
     Route: 048
     Dates: start: 20190724, end: 20190731
  3. THYRADIN-S [Concomitant]
     Active Substance: LEVOTHYROXINE
     Route: 048
     Dates: start: 20190724, end: 20190731
  4. LOXOPROFEN [Concomitant]
     Active Substance: LOXOPROFEN
     Route: 048
     Dates: start: 20190728, end: 20190731
  5. JANUVIA [Concomitant]
     Active Substance: SITAGLIPTIN PHOSPHATE
     Route: 048
     Dates: start: 20190724, end: 20190731
  6. NEXIUM [Concomitant]
     Active Substance: ESOMEPRAZOLE MAGNESIUM
     Route: 048
     Dates: start: 20190724, end: 20190731

REACTIONS (5)
  - Cardio-respiratory arrest [Fatal]
  - Hypoxic-ischaemic encephalopathy [Unknown]
  - Cardiac failure [Unknown]
  - Lung disorder [Fatal]
  - Oedema peripheral [Unknown]

NARRATIVE: CASE EVENT DATE: 20190731
